FAERS Safety Report 6405098-7 (Version None)
Quarter: 2009Q4

REPORT INFORMATION
  Report Type: 
  Country: None (occurrence: None)
  Receive Date: 20091013
  Receipt Date: 20091008
  Transmission Date: 20100525
  Serious: Yes (Death)
  Sender: FDA-Public Use
  Company Number: 2009SP025607

PATIENT
  Age: 59 Year
  Sex: Female
  Weight: 57 kg

DRUGS (8)
  1. TEMODAL [Suspect]
     Indication: GLIOBLASTOMA
     Dosage: 140 MG; QD;
     Dates: start: 20090723, end: 20090820
  2. FORTECORTIN [Concomitant]
  3. PANTOPRAZOLE SODIUM [Concomitant]
  4. BISOPROLOL [Concomitant]
  5. DIFLUCAN [Concomitant]
  6. GLANDOMED [Concomitant]
  7. CLEXANE [Concomitant]
  8. CIPRO [Concomitant]

REACTIONS (3)
  - BONE MARROW FAILURE [None]
  - EPISTAXIS [None]
  - HAEMORRHAGIC DIATHESIS [None]
